FAERS Safety Report 5175867-2 (Version None)
Quarter: 2006Q4

REPORT INFORMATION
  Report Type: 
  Country: None (occurrence: None)
  Receive Date: 20061215
  Receipt Date: 20061204
  Transmission Date: 20070319
  Serious: Yes (Hospitalization)
  Sender: FDA-Public Use
  Company Number: PHRM2006FR03235

PATIENT
  Age: 12 Year
  Sex: Male
  Weight: 44 kg

DRUGS (3)
  1. NEORAL [Suspect]
     Indication: BONE MARROW TRANSPLANT
     Dosage: 60 MG, BID
     Route: 048
     Dates: start: 20061024, end: 20061024
  2. NEORAL [Suspect]
     Dosage: 40 MG, BID
     Route: 048
     Dates: start: 20061025, end: 20061101
  3. NEORAL [Suspect]
     Dosage: 80 MG, BID
     Route: 048
     Dates: start: 20060914, end: 20061023

REACTIONS (10)
  - ACUTE GRAFT VERSUS HOST DISEASE IN SKIN [None]
  - CEREBRAL DISORDER [None]
  - CYTOLYTIC HEPATITIS [None]
  - DELUSION [None]
  - DEPRESSED LEVEL OF CONSCIOUSNESS [None]
  - HALLUCINATION [None]
  - HEADACHE [None]
  - NIGHTMARE [None]
  - PHOTOPHOBIA [None]
  - PYREXIA [None]
